FAERS Safety Report 6083968-X (Version None)
Quarter: 2009Q1

REPORT INFORMATION
  Report Type: 
  Country: None (occurrence: None)
  Receive Date: 20090219
  Receipt Date: 20090206
  Transmission Date: 20090719
  Serious: Yes (Other)
  Sender: FDA-Public Use
  Company Number: US-PFIZER INC-2008091361

PATIENT
  Sex: Female
  Weight: 63.492 kg

DRUGS (5)
  1. CHANTIX [Suspect]
     Dosage: UNK
     Route: 048
     Dates: end: 20081009
  2. LYRICA [Suspect]
     Dosage: 150 MG, 2X/DAY
  3. PERCOCET [Suspect]
     Dosage: UNK
  4. BACLOFEN [Suspect]
     Dosage: 20 MG, 3X/DAY
  5. EFFEXOR [Concomitant]
     Indication: DEPRESSION
     Dosage: UNK

REACTIONS (14)
  - ANGER [None]
  - ANXIETY [None]
  - BIPOLAR DISORDER [None]
  - CRYING [None]
  - DEPRESSED MOOD [None]
  - DEPRESSION [None]
  - DRUG ABUSE [None]
  - EMOTIONAL DISORDER [None]
  - HEADACHE [None]
  - IMPAIRED WORK ABILITY [None]
  - INSOMNIA [None]
  - NAUSEA [None]
  - NIGHTMARE [None]
  - THINKING ABNORMAL [None]
